FAERS Safety Report 5904856-2 (Version None)
Quarter: 2008Q4

REPORT INFORMATION
  Report Type: 
  Country: None (occurrence: None)
  Receive Date: 20081001
  Receipt Date: 20080925
  Transmission Date: 20090506
  Serious: Yes (Life-Threatening, Hospitalization, Other)
  Sender: FDA-Public Use
  Company Number: A0740544A

PATIENT
  Age: 61 Year
  Sex: Female
  Weight: 61.4 kg

DRUGS (5)
  1. ADVAIR DISKUS 100/50 [Suspect]
     Indication: ASTHMA
     Dosage: 1PUFF TWICE PER DAY
     Route: 055
     Dates: start: 20061229, end: 20070103
  2. COMBIVENT [Concomitant]
  3. ATENOLOL [Concomitant]
     Indication: HYPERTENSION
  4. PLAVIX [Concomitant]
  5. ASPIRIN [Concomitant]

REACTIONS (7)
  - CARDIAC DISORDER [None]
  - CARDIAC ENZYMES INCREASED [None]
  - CHEST PAIN [None]
  - DECREASED ACTIVITY [None]
  - DYSPNOEA [None]
  - PRODUCT QUALITY ISSUE [None]
  - ULCER HAEMORRHAGE [None]
